FAERS Safety Report 6689127-1 (Version None)
Quarter: 2010Q2

REPORT INFORMATION
  Report Type: 
  Country: None (occurrence: None)
  Receive Date: 20100412
  Receipt Date: 20100119
  Transmission Date: 20101027
  Serious: No
  Sender: FDA-Public Use
  Company Number: 1000011345

PATIENT
  Age: 56 Year
  Sex: Male

DRUGS (3)
  1. BYSTOLIC [Suspect]
     Dosage: 10 (10 MG, 1 IN 1 D) ORAL
     Route: 048
     Dates: start: 20100109
  2. CIALIS [Concomitant]
  3. CINNAMON [Concomitant]

REACTIONS (2)
  - EPISTAXIS [None]
  - FAECES DISCOLOURED [None]
